FAERS Safety Report 19981143 (Version 1)
Quarter: 2021Q4

REPORT INFORMATION
  Report Type: Spontaneous
  Country: CZ (occurrence: CZ)
  Receive Date: 20211022
  Receipt Date: 20211022
  Transmission Date: 20220304
  Serious: Yes (Hospitalization, Other)
  Sender: FDA-Public Use
  Company Number: CZ-BRISTOL-MYERS SQUIBB COMPANY-BMS-2021-106367

PATIENT
  Age: 62 Year
  Sex: Male
  Weight: 150 kg

DRUGS (4)
  1. OPDIVO [Suspect]
     Active Substance: NIVOLUMAB
     Indication: Renal cancer
     Dosage: 450 MILLIGRAM
     Route: 065
     Dates: start: 202108
  2. YERVOY [Suspect]
     Active Substance: IPILIMUMAB
     Indication: Renal cancer
     Dosage: 150 MILLIGRAM
     Route: 065
     Dates: start: 202108
  3. SOLU-MEDROL [Concomitant]
     Active Substance: METHYLPREDNISOLONE SODIUM SUCCINATE
     Indication: Product used for unknown indication
     Dosage: 3 AMP. OF 62. 5MG
     Route: 042
     Dates: start: 20211006
  4. SOLU-MEDROL [Concomitant]
     Active Substance: METHYLPREDNISOLONE SODIUM SUCCINATE
     Dosage: 125 MG IN THE MORNING, TODAY DAY 7
     Route: 065

REACTIONS (1)
  - Hypersensitivity pneumonitis [Unknown]
